FAERS Safety Report 6295349-4 (Version None)
Quarter: 2009Q3

REPORT INFORMATION
  Report Type: 
  Country: None (occurrence: None)
  Receive Date: 20090730
  Receipt Date: 20090722
  Transmission Date: 20100115
  Serious: Yes (Hospitalization)
  Sender: FDA-Public Use
  Company Number: ADR111172009 (DK ADR NO. DKMA-20091

PATIENT
  Sex: Female

DRUGS (1)
  1. CITALOPRAM HYDROBROMIDE [Suspect]
     Indication: DEPRESSION
     Dosage: TRANSPLACENTAL
     Route: 064
     Dates: start: 20080928, end: 20081002

REACTIONS (3)
  - HEART RATE DECREASED [None]
  - NEONATAL ASPHYXIA [None]
  - RESPIRATORY DISTRESS [None]
